FAERS Safety Report 11533428 (Version 8)
Quarter: 2016Q1

REPORT INFORMATION
  Report Type: Report from Study
  Country: PL (occurrence: PL)
  Receive Date: 20150921
  Receipt Date: 20160331
  Transmission Date: 20160525
  Serious: Yes (Death, Other)
  Sender: FDA-Public Use
  Company Number: PL-SEATTLE GENETICS-2015SGN01508

PATIENT

DRUGS (4)
  1. DOXORUBICIN [Suspect]
     Active Substance: DOXORUBICIN
     Indication: HODGKIN^S DISEASE
     Dosage: 25 MG, UNK
     Route: 042
     Dates: start: 20150904, end: 20150904
  2. DACARBAZINE. [Suspect]
     Active Substance: DACARBAZINE
     Indication: HODGKIN^S DISEASE
     Dosage: 375 MG, UNK
     Route: 042
     Dates: start: 20150904, end: 20150904
  3. BRENTUXIMAB VEDOTIN [Suspect]
     Active Substance: BRENTUXIMAB VEDOTIN
     Indication: HODGKIN^S DISEASE
     Dosage: 1.2 MG/KG, UNK
     Route: 042
     Dates: start: 20150904, end: 20150904
  4. VINBLASTINE [Suspect]
     Active Substance: VINBLASTINE
     Indication: HODGKIN^S DISEASE
     Dosage: 6 MG, UNK
     Route: 042
     Dates: start: 20150904, end: 20150904

REACTIONS (2)
  - Histiocytosis haematophagic [Fatal]
  - Hodgkin^s disease [Fatal]

NARRATIVE: CASE EVENT DATE: 20150911
